FAERS Safety Report 17805103 (Version 3)
Quarter: 2020Q2

REPORT INFORMATION
  Report Type: Spontaneous
  Country: CZ (occurrence: CZ)
  Receive Date: 20200520
  Receipt Date: 20200603
  Transmission Date: 20200714
  Serious: Yes (Death, Life-Threatening, Hospitalization, Other)
  Sender: FDA-Public Use
  Company Number: CZ-CELLTRION INC.-2020CZ022471

PATIENT

DRUGS (7)
  1. DOXORUBICIN [Suspect]
     Active Substance: DOXORUBICIN
     Indication: RICHTER^S SYNDROME
     Dosage: R-CHOP
     Dates: start: 2018
  2. VINCRISTINE [Suspect]
     Active Substance: VINCRISTINE
     Indication: RICHTER^S SYNDROME
     Dosage: R-CHOP
     Dates: start: 2018
  3. RITUXIMAB (UNKNOWN) [Suspect]
     Active Substance: RITUXIMAB
     Indication: RICHTER^S SYNDROME
     Dosage: R-CHOP
     Dates: start: 2018
  4. DOXIL [DOXYCYCLINE HYDROCHLORIDE] [Suspect]
     Active Substance: DOXYCYCLINE HYDROCHLORIDE
     Indication: CHRONIC LYMPHOCYTIC LEUKAEMIA
     Dosage: UNK
     Route: 065
  5. PREDNISONE. [Suspect]
     Active Substance: PREDNISONE
     Indication: RICHTER^S SYNDROME
     Dosage: RCHOP, 1 CYCLE
     Dates: start: 2018
  6. CYCLOPHOSPHAMIDE. [Suspect]
     Active Substance: CYCLOPHOSPHAMIDE
     Indication: RICHTER^S SYNDROME
     Dosage: R-CHOP
     Dates: start: 2018
  7. ENDOXAN [CYCLOPHOSPHAMIDE MONOHYDRATE] [Suspect]
     Active Substance: CYCLOPHOSPHAMIDE
     Indication: CHRONIC LYMPHOCYTIC LEUKAEMIA
     Dosage: 1 G
     Route: 065

REACTIONS (5)
  - Off label use [Unknown]
  - Malignant neoplasm progression [Unknown]
  - Richter^s syndrome [Fatal]
  - Chronic lymphocytic leukaemia transformation [Unknown]
  - Neutropenic sepsis [Unknown]

NARRATIVE: CASE EVENT DATE: 2018
